FAERS Safety Report 10981697 (Version 1)
Quarter: 2015Q1

REPORT INFORMATION
  Report Type: Spontaneous
  Country: US (occurrence: None)
  Receive Date: 20150227
  Receipt Date: 20150227
  Transmission Date: 20150721
  Serious: Yes (Other)
  Sender: FDA-Public Use
  Company Number: LMI-2014-00340

PATIENT
  Age: 68 Year
  Sex: Male

DRUGS (7)
  1. DEFINITY [Suspect]
     Active Substance: PERFLUTREN
     Indication: ECHOCARDIOGRAM
     Dosage: 4 ML (1.3 ML DEFINITY DILUTED IN 7 ML SALINE) (1 IN 1 D), INTRAVENOUS BOLUS
     Route: 040
     Dates: start: 20140710, end: 20140710
  2. LISINOPRIL. [Concomitant]
     Active Substance: LISINOPRIL
  3. ALENDRONATE (SPIRONOLACTONE) [Concomitant]
  4. ZYRTEC [Concomitant]
     Active Substance: CETIRIZINE HYDROCHLORIDE
  5. METOPROLOL XR [Concomitant]
     Active Substance: METOPROLOL SUCCINATE
  6. LASIX [Concomitant]
     Active Substance: FUROSEMIDE
  7. XARELTO [Concomitant]
     Active Substance: RIVAROXABAN

REACTIONS (8)
  - Somnolence [None]
  - Hypersensitivity [None]
  - Oxygen saturation decreased [None]
  - Faecal incontinence [None]
  - Urinary incontinence [None]
  - Hyperhidrosis [None]
  - Heart rate decreased [None]
  - Wheezing [None]

NARRATIVE: CASE EVENT DATE: 20140710
